FAERS Safety Report 24323405 (Version 1)
Quarter: 2024Q3

REPORT INFORMATION
  Report Type: Spontaneous
  Country: PT (occurrence: PT)
  Receive Date: 20240916
  Receipt Date: 20240916
  Transmission Date: 20241017
  Serious: Yes (Other)
  Sender: ROCHE
  Company Number: None

PATIENT
  Age: 63 Year
  Sex: Female

DRUGS (1)
  1. BEVACIZUMAB [Suspect]
     Active Substance: BEVACIZUMAB
     Indication: Retinal exudates
     Dosage: UNK
     Route: 065

REACTIONS (4)
  - Off label use [Unknown]
  - Lung adenocarcinoma stage IV [Unknown]
  - Serous retinal detachment [Unknown]
  - Retinal exudates [Unknown]

NARRATIVE: CASE EVENT DATE: 20231001
